FAERS Safety Report 5208415-9 (Version None)
Quarter: 2006Q4

REPORT INFORMATION
  Report Type: 
  Country: None (occurrence: None)
  Receive Date: 20061026
  Receipt Date: 20060816
  Transmission Date: 20070319
  Serious: No
  Sender: FDA-Public Use
  Company Number: 2006098408

PATIENT
  Age: 67 Year
  Sex: Female
  Weight: 50.8029 kg

DRUGS (2)
  1. LYRICA [Suspect]
     Indication: HERPES ZOSTER
     Dosage: 150 MG (50 MG,3 IN 1 D)
     Dates: start: 20060101, end: 20060728
  2. ALL OTHER THERAPEUTIC PRODUCTS (ALL OTHER THERAPEUTIC PRODUCTS) [Concomitant]

REACTIONS (3)
  - CRYING [None]
  - DEPRESSION [None]
  - DRUG INEFFECTIVE [None]
